FAERS Safety Report 14315921 (Version 2)
Quarter: 2018Q1

REPORT INFORMATION
  Report Type: Report from Study
  Country: CO (occurrence: CO)
  Receive Date: 20171221
  Receipt Date: 20180205
  Transmission Date: 20180509
  Serious: Yes (Hospitalization, Other)
  Sender: FDA-Public Use
  Company Number: CO-BRISTOL-MYERS SQUIBB COMPANY-BMS-2017-076999

PATIENT
  Age: 63 Year
  Sex: Male

DRUGS (1)
  1. NIVOLUMAB [Suspect]
     Active Substance: NIVOLUMAB
     Indication: RENAL CANCER
     Dosage: 240 MG, QWK
     Route: 042
     Dates: start: 20170712, end: 20171215

REACTIONS (4)
  - Malignant neoplasm progression [Recovered/Resolved]
  - Transaminases increased [Recovered/Resolved]
  - Leukopenia [Recovering/Resolving]
  - Volvulus [Recovered/Resolved]

NARRATIVE: CASE EVENT DATE: 20170813
